FAERS Safety Report 22059587 (Version 1)
Quarter: 2023Q1

REPORT INFORMATION
  Report Type: Spontaneous
  Country: US (occurrence: None)
  Receive Date: 20230302
  Receipt Date: 20230302
  Transmission Date: 20230418
  Serious: No
  Sender: FDA-Public Use
  Company Number: None

PATIENT
  Age: 66 Year
  Sex: Male
  Weight: 107.5 kg

DRUGS (16)
  1. XGEVA [Suspect]
     Active Substance: DENOSUMAB
     Indication: Prostate cancer
     Dosage: FREQUENCY : WEEKLY;?
     Route: 058
  2. ABIRATERONE [Concomitant]
  3. ALBUTEROL [Concomitant]
  4. ATORVASTATIN [Concomitant]
  5. BREO ELLIPTA [Concomitant]
  6. CALCIUM-VITAMIN D [Concomitant]
  7. ELIQUIS [Concomitant]
  8. ESCITALOPRAM [Concomitant]
  9. FOLIC ACID [Concomitant]
  10. FUROSEMIDE [Concomitant]
  11. IPRATROPIUM-ALBUTEROL [Concomitant]
  12. LEVOTHYROXINE [Concomitant]
  13. MAGOX [Concomitant]
  14. MULTIVITAMIN [Concomitant]
  15. POTASSIUM CHLORIDE [Concomitant]
  16. PREDNISONE [Concomitant]

REACTIONS (2)
  - COVID-19 [None]
  - Therapy interrupted [None]
